FAERS Safety Report 12729131 (Version 2)
Quarter: 2016Q3

REPORT INFORMATION
  Report Type: Report from Study
  Country: CO (occurrence: CO)
  Receive Date: 20160909
  Receipt Date: 20160926
  Transmission Date: 20161109
  Serious: Yes (Hospitalization, Other)
  Sender: FDA-Public Use
  Company Number: PHHY2016CO073231

PATIENT
  Sex: Female
  Weight: 65 kg

DRUGS (12)
  1. REVOLADE [Suspect]
     Active Substance: ELTROMBOPAG
     Indication: IMMUNE THROMBOCYTOPENIC PURPURA
     Dosage: 25 MG, QD
     Route: 048
     Dates: start: 20160217
  2. FERROUS SULFATE. [Concomitant]
     Active Substance: FERROUS SULFATE
     Dosage: 300 MG, QD
     Route: 048
  3. REVOLADE [Suspect]
     Active Substance: ELTROMBOPAG
     Dosage: 2 DF, QD
     Route: 048
  4. CALCIUM + VITAMIN D                /01817601/ [Concomitant]
     Active Substance: CALCIUM LACTATE\CALCIUM PHOSPHATE\CHOLECALCIFEROL
     Indication: PRODUCT USED FOR UNKNOWN INDICATION
     Dosage: 20 MG, QD
     Route: 048
  5. DANAZOL. [Concomitant]
     Active Substance: DANAZOL
     Dosage: 300 MG, QD
     Route: 048
  6. ASPIRIN//ACETYLSALICYLIC ACID [Concomitant]
     Active Substance: ASPIRIN
     Indication: PRODUCT USED FOR UNKNOWN INDICATION
     Dosage: 100 MG, QD
     Route: 048
  7. ATORVASTATIN [Concomitant]
     Active Substance: ATORVASTATIN
     Indication: BLOOD CHOLESTEROL ABNORMAL
     Dosage: 40 MG, QD
     Route: 048
  8. FERROUS SULFATE. [Concomitant]
     Active Substance: FERROUS SULFATE
     Indication: PRODUCT USED FOR UNKNOWN INDICATION
     Dosage: UNK
     Route: 065
  9. DANAZOL. [Concomitant]
     Active Substance: DANAZOL
     Indication: PRODUCT USED FOR UNKNOWN INDICATION
     Dosage: 200 MG, QD
     Route: 048
  10. ENALAPRIL [Concomitant]
     Active Substance: ENALAPRIL
     Indication: BLOOD PRESSURE ABNORMAL
     Dosage: 20 MG, QD
     Route: 048
  11. FLUOXETINE [Concomitant]
     Active Substance: FLUOXETINE HYDROCHLORIDE
     Indication: PRODUCT USED FOR UNKNOWN INDICATION
     Dosage: 20 MG, QD
     Route: 048
  12. REVOLADE [Suspect]
     Active Substance: ELTROMBOPAG
     Dosage: 1 DF, QD
     Route: 048

REACTIONS (15)
  - Dyspnoea [Unknown]
  - Decreased appetite [Recovered/Resolved]
  - Dysuria [Recovered/Resolved]
  - Abdominal pain upper [Unknown]
  - Cardiac failure [Unknown]
  - Cardiac disorder [Unknown]
  - Pain [Unknown]
  - Cough [Unknown]
  - Dizziness [Unknown]
  - Cardiomegaly [Unknown]
  - Nausea [Unknown]
  - Back pain [Unknown]
  - Eyelid oedema [Unknown]
  - Drug intolerance [Unknown]
  - Diarrhoea [Unknown]
